FAERS Safety Report 7283393-X (Version None)
Quarter: 2011Q1

REPORT INFORMATION
  Report Type: 
  Country: None (occurrence: None)
  Receive Date: 20110209
  Receipt Date: 20100806
  Transmission Date: 20110831
  Serious: No
  Sender: FDA-Public Use
  Company Number: A0874436A

PATIENT
  Age: 63 Year
  Sex: Male

DRUGS (4)
  1. OTHER MEDICATIONS [Concomitant]
  2. PAXIL [Suspect]
     Dosage: 20MG THREE TIMES PER DAY
     Route: 048
     Dates: start: 20050101
  3. WELLBUTRIN SR [Suspect]
     Indication: BIPOLAR II DISORDER
     Dosage: 100MG UNKNOWN
     Route: 048
  4. PAROXETINE HCL [Suspect]
     Indication: BIPOLAR II DISORDER
     Dosage: 20MG THREE TIMES PER DAY
     Route: 048
     Dates: start: 20000601

REACTIONS (4)
  - ERECTILE DYSFUNCTION [None]
  - HYPERSOMNIA [None]
  - ADVERSE EVENT [None]
  - SOMNOLENCE [None]
